FAERS Safety Report 17584751 (Version 1)
Quarter: 2020Q1

REPORT INFORMATION
  Report Type: Spontaneous
  Country: US (occurrence: US)
  Receive Date: 20200323
  Receipt Date: 20200323
  Transmission Date: 20200409
  Serious: Yes (Death)
  Sender: FDA-Public Use
  Company Number: None

PATIENT
  Age: 62 Year
  Sex: Male
  Weight: 104.33 kg

DRUGS (2)
  1. CORTISONE [Suspect]
     Active Substance: CORTISONE
  2. ZIPSOR [Suspect]
     Active Substance: DICLOFENAC POTASSIUM
     Indication: PAIN
     Dosage: ?          QUANTITY:4 CAPSULES;OTHER FREQUENCY:1 FOUR TIMES A DAY;?
     Route: 048
     Dates: start: 20171230, end: 20171231

REACTIONS (1)
  - Chest pain [None]

NARRATIVE: CASE EVENT DATE: 20171231
